FAERS Safety Report 8485006-8 (Version None)
Quarter: 2012Q3

REPORT INFORMATION
  Report Type: 
  Country: None (occurrence: None)
  Receive Date: 20120703
  Receipt Date: 20120627
  Transmission Date: 20120928
  Serious: Yes (Other)
  Sender: FDA-Public Use
  Company Number: US-AMGEN-USASP2012039813

PATIENT
  Age: 52 Year
  Sex: Female

DRUGS (1)
  1. ENBREL [Suspect]
     Indication: PSORIASIS
     Dosage: UNK
     Dates: start: 20110101

REACTIONS (7)
  - HYPERSENSITIVITY [None]
  - NEURALGIA [None]
  - PARAESTHESIA [None]
  - ARTHROPATHY [None]
  - HYPOAESTHESIA [None]
  - VITAMIN D DECREASED [None]
  - MENTAL DISORDER [None]
